FAERS Safety Report 16417181 (Version 1)
Quarter: 2019Q2

REPORT INFORMATION
  Report Type: Spontaneous
  Country: US (occurrence: US)
  Receive Date: 20190611
  Receipt Date: 20190611
  Transmission Date: 20190711
  Serious: No
  Sender: FDA-Public Use
  Company Number: US-PFIZER INC-2019224420

PATIENT
  Age: 45 Year
  Sex: Female

DRUGS (2)
  1. METOCLOPRAMIDE HCL [Suspect]
     Active Substance: METOCLOPRAMIDE HYDROCHLORIDE
     Dosage: UNK
  2. FINGOLIMOD. [Suspect]
     Active Substance: FINGOLIMOD
     Dosage: UNK

REACTIONS (1)
  - Drug hypersensitivity [Unknown]
